FAERS Safety Report 9228056 (Version 1)
Quarter: 2013Q2

REPORT INFORMATION
  Report Type: Spontaneous
  Country: US (occurrence: US)
  Receive Date: 20130412
  Receipt Date: 20130412
  Transmission Date: 20140414
  Serious: No
  Sender: FDA-Public Use
  Company Number: US-GLAXOSMITHKLINE-A1012670A

PATIENT
  Age: 81 Year
  Sex: Male

DRUGS (11)
  1. JALYN [Suspect]
     Indication: BENIGN PROSTATIC HYPERPLASIA
     Dosage: 1CAP PER DAY
     Route: 048
     Dates: start: 201012
  2. BENICAR [Concomitant]
  3. CALTRATE WITH VITAMIN D [Concomitant]
  4. CARAFATE [Concomitant]
  5. FERROUS GLUCONATE [Concomitant]
  6. MULTIVITAMIN [Concomitant]
  7. NEXIUM [Concomitant]
  8. NYSTATIN SOLUTION [Concomitant]
  9. QUININE [Concomitant]
  10. ZANTAC [Concomitant]
  11. VESICARE [Concomitant]

REACTIONS (1)
  - Medication residue present [Unknown]
